FAERS Safety Report 18107678 (Version 3)
Quarter: 2020Q4

REPORT INFORMATION
  Report Type: Spontaneous
  Country: US (occurrence: US)
  Receive Date: 20200804
  Receipt Date: 20201209
  Transmission Date: 20210113
  Serious: Yes (Other)
  Sender: FDA-Public Use
  Company Number: US-PFIZER INC-2020293428

PATIENT
  Age: 87 Year
  Sex: Female

DRUGS (2)
  1. IBRANCE [Suspect]
     Active Substance: PALBOCICLIB
     Indication: BREAST CANCER FEMALE
     Dosage: 75 MG, CYCLIC (DAILY FOR 21 DAYS OFF FOR 7)
     Dates: start: 20200421
  2. IBRANCE [Suspect]
     Active Substance: PALBOCICLIB
     Indication: BREAST CANCER FEMALE
     Dosage: 75 MG,1 DAILY FOR 21 DAYS FOLLOW UP 7 DAYS OFF
     Dates: start: 20180524

REACTIONS (4)
  - Choking [Unknown]
  - Retching [Unknown]
  - Alopecia [Unknown]
  - Dry mouth [Unknown]
